FAERS Safety Report 7634156-4 (Version None)
Quarter: 2011Q3

REPORT INFORMATION
  Report Type: 
  Country: None (occurrence: None)
  Receive Date: 20110725
  Receipt Date: 20110720
  Transmission Date: 20111222
  Serious: No
  Sender: FDA-Public Use
  Company Number: US-PFIZER INC-2011165875

PATIENT
  Sex: Female

DRUGS (3)
  1. XANAX [Suspect]
     Dosage: UNK
  2. FOLIC ACID [Suspect]
     Dosage: UNK
  3. VITAMIN B-12 [Suspect]
     Dosage: UNK

REACTIONS (1)
  - CONSTIPATION [None]
